APPROVED DRUG PRODUCT: NUPLAZID
Active Ingredient: PIMAVANSERIN TARTRATE
Strength: EQ 17MG BASE **Federal Register determination that product was not discontinued or withdrawn for safety or effectiveness reasons**
Dosage Form/Route: TABLET;ORAL
Application: N207318 | Product #001
Applicant: ACADIA PHARMACEUTICALS INC
Approved: Apr 29, 2016 | RLD: Yes | RS: No | Type: DISCN

PATENTS:
Patent 7659285 | Expires: Aug 24, 2026
Patent 7732615 | Expires: Jun 3, 2028
Patent 7601740 | Expires: Apr 29, 2030